FAERS Safety Report 4778804-5 (Version None)
Quarter: 2005Q3

REPORT INFORMATION
  Report Type: 
  Country: None (occurrence: None)
  Receive Date: 20050922
  Receipt Date: 20050909
  Transmission Date: 20060218
  Serious: Yes (Other)
  Sender: FDA-Public Use
  Company Number: 2005-DE-03657GD

PATIENT
  Age: 47 Year
  Sex: Female

DRUGS (3)
  1. ALBUTEROL SULFATE HFA [Suspect]
     Indication: ASTHMA
     Dosage: IH
     Route: 055
  2. HYDROCORTISONE [Suspect]
     Indication: ASTHMA
     Dosage: IV
     Route: 042
  3. AMINOPHYLLIN [Suspect]
     Indication: ASTHMA

REACTIONS (2)
  - BLOOD PH DECREASED [None]
  - DRUG INEFFECTIVE [None]
